FAERS Safety Report 14777821 (Version 1)
Quarter: 2018Q2

REPORT INFORMATION
  Report Type: Spontaneous
  Country: PT (occurrence: PT)
  Receive Date: 20180419
  Receipt Date: 20180419
  Transmission Date: 20180711
  Serious: Yes (Hospitalization, Other)
  Sender: FDA-Public Use
  Company Number: PT-ACCORD-065632

PATIENT
  Age: 49 Year
  Sex: Male

DRUGS (1)
  1. SIMVASTATIN. [Suspect]
     Active Substance: SIMVASTATIN
     Indication: DYSLIPIDAEMIA
     Dates: start: 20160605

REACTIONS (11)
  - Myalgia [Unknown]
  - Increased appetite [Unknown]
  - Weight increased [Unknown]
  - Face oedema [Unknown]
  - Snoring [Unknown]
  - Rhabdomyolysis [Recovering/Resolving]
  - Oedema peripheral [Unknown]
  - Renal injury [Unknown]
  - Dysphonia [Unknown]
  - Hypothyroidism [Unknown]
  - Muscle spasms [Unknown]
